FAERS Safety Report 10219149 (Version 2)
Quarter: 2014Q3

REPORT INFORMATION
  Report Type: Spontaneous
  Country: US (occurrence: US)
  Receive Date: 20140605
  Receipt Date: 20140714
  Transmission Date: 20150326
  Serious: Yes (Other)
  Sender: FDA-Public Use
  Company Number: US-TEVA-486318USA

PATIENT
  Age: 30 Year
  Sex: Female
  Weight: 86.26 kg

DRUGS (3)
  1. PARAGARD T380A [Suspect]
     Active Substance: COPPER
     Route: 015
     Dates: start: 20140613
  2. PRENATAL VITAMINS [Concomitant]
     Active Substance: VITAMINS
     Indication: PRODUCT USED FOR UNKNOWN INDICATION
  3. PARAGARD T380A [Suspect]
     Active Substance: COPPER
     Indication: CONTRACEPTION
     Route: 015
     Dates: start: 20140402, end: 20140602

REACTIONS (4)
  - Pelvic pain [Unknown]
  - Device dislocation [Recovered/Resolved]
  - Vaginal haemorrhage [Unknown]
  - Abdominal pain [Unknown]

NARRATIVE: CASE EVENT DATE: 20140402
